FAERS Safety Report 20827292 (Version 3)
Quarter: 2022Q4

REPORT INFORMATION
  Report Type: Report from Study
  Country: US (occurrence: US)
  Receive Date: 20220513
  Receipt Date: 20221010
  Transmission Date: 20230112
  Serious: Yes (Other)
  Sender: FDA-Public Use
  Company Number: US-NOVARTISPH-NVSC2022US110624

PATIENT
  Sex: Female

DRUGS (2)
  1. PIQRAY [Suspect]
     Active Substance: ALPELISIB
     Indication: Product used for unknown indication
     Dosage: UNK
     Route: 065
     Dates: start: 20220310
  2. PIQRAY [Suspect]
     Active Substance: ALPELISIB
     Dosage: 300 MG (TAKE 300 MG (TWO 150 MG TABLETS) BY MOUTH DAILY)
     Route: 048

REACTIONS (4)
  - Type 1 diabetes mellitus [Unknown]
  - Stomatitis [Unknown]
  - Blood glucose increased [Unknown]
  - Drug ineffective [Unknown]
